FAERS Safety Report 18199836 (Version 1)
Quarter: 2020Q3

REPORT INFORMATION
  Report Type: Spontaneous
  Country: JP (occurrence: JP)
  Receive Date: 20200827
  Receipt Date: 20200827
  Transmission Date: 20201103
  Serious: Yes (Hospitalization, Other)
  Sender: FDA-Public Use
  Company Number: JP-INGENUS PHARMACEUTICALS, LLC-2020INF000145

PATIENT
  Age: 74 Year
  Sex: Female

DRUGS (4)
  1. FLUOROURACIL. [Suspect]
     Active Substance: FLUOROURACIL
     Dosage: 2400 MILLIGRAM/SQ. METER, 46 H INFUSION
     Route: 042
  2. FLUOROURACIL. [Suspect]
     Active Substance: FLUOROURACIL
     Indication: RECTAL CANCER
     Dosage: 400 MILLIGRAM/SQ. METER
     Route: 065
  3. OXALIPLATIN. [Suspect]
     Active Substance: OXALIPLATIN
     Indication: RECTAL CANCER
     Dosage: 85 MILLIGRAM/SQ. METER, ON DAY 1
     Route: 065
  4. LEVOLEUCOVORIN CALCIUM. [Suspect]
     Active Substance: LEVOLEUCOVORIN CALCIUM
     Indication: RECTAL CANCER
     Dosage: 200 MILLIGRAM/SQ. METER, OVER 2 H
     Route: 042

REACTIONS (1)
  - Interstitial lung disease [Recovering/Resolving]
